FAERS Safety Report 20142621 (Version 1)
Quarter: 2021Q4

REPORT INFORMATION
  Report Type: Spontaneous
  Country: US (occurrence: None)
  Receive Date: 20211202
  Receipt Date: 20211202
  Transmission Date: 20220303
  Serious: No
  Sender: FDA-Public Use
  Company Number: US-ROCHE-2700518

PATIENT
  Sex: Female

DRUGS (4)
  1. VALIUM [Suspect]
     Active Substance: DIAZEPAM
     Indication: Product use in unapproved indication
     Dosage: 1 TABLET AS NEEDED ORALLY Q 30 MIN; NOTE : 60 MIN BEFORE THE MRI, MAY REPEAT IN 30 MIN IF NEEDED.
     Route: 048
  2. IBUPROFEN [Concomitant]
     Active Substance: IBUPROFEN
     Dosage: AS NEEDED
     Route: 048
  3. AUBAGIO [Concomitant]
     Active Substance: TERIFLUNOMIDE
     Dosage: ONCE DAILY FOR A MONTH
     Route: 048
  4. AUBAGIO [Concomitant]
     Active Substance: TERIFLUNOMIDE
     Route: 048

REACTIONS (5)
  - Hypoaesthesia [Unknown]
  - Paraesthesia [Unknown]
  - Gait disturbance [Unknown]
  - Limb discomfort [Unknown]
  - Pain [Unknown]
